FAERS Safety Report 23551478 (Version 2)
Quarter: 2024Q2

REPORT INFORMATION
  Report Type: Spontaneous
  Country: US (occurrence: US)
  Receive Date: 20240222
  Receipt Date: 20240417
  Transmission Date: 20240715
  Serious: No
  Sender: FDA-Public Use
  Company Number: US-Calliditas-2024CAL00201

PATIENT
  Age: 64 Year
  Sex: Female
  Weight: 103 kg

DRUGS (1)
  1. TARPEYO [Suspect]
     Active Substance: BUDESONIDE
     Indication: IgA nephropathy
     Dosage: 16 MG (4 MG CAPSULE) ONCE DAILY
     Route: 048
     Dates: start: 20240106

REACTIONS (4)
  - Flatulence [Unknown]
  - Gastrooesophageal reflux disease [Not Recovered/Not Resolved]
  - Therapeutic response unexpected [Unknown]
  - Inhibitory drug interaction [Not Recovered/Not Resolved]
